FAERS Safety Report 6494051-3 (Version None)
Quarter: 2009Q4

REPORT INFORMATION
  Report Type: 
  Country: None (occurrence: None)
  Receive Date: 20091214
  Receipt Date: 20081216
  Transmission Date: 20100525
  Serious: No
  Sender: FDA-Public Use
  Company Number: US-BRISTOL-MYERS SQUIBB COMPANY-14444509

PATIENT
  Age: 45 Year
  Sex: Female
  Weight: 50 kg

DRUGS (4)
  1. ABILIFY [Suspect]
     Indication: OBSESSIVE-COMPULSIVE DISORDER
     Dates: start: 20080101, end: 20080101
  2. CYMBALTA [Concomitant]
  3. ADVAIR DISKUS 100/50 [Concomitant]
  4. PROVENTIL [Concomitant]

REACTIONS (2)
  - FEELING ABNORMAL [None]
  - MEMORY IMPAIRMENT [None]
